FAERS Safety Report 13696880 (Version 1)
Quarter: 2017Q2

REPORT INFORMATION
  Report Type: Spontaneous
  Country: US (occurrence: US)
  Receive Date: 20170627
  Receipt Date: 20170627
  Transmission Date: 20170830
  Serious: Yes (Death, Life-Threatening, Hospitalization, Disabling)
  Sender: FDA-Public Use
  Company Number: None

PATIENT
  Age: 36 Year
  Sex: Male
  Weight: 94 kg

DRUGS (1)
  1. TRUVADA [Suspect]
     Active Substance: EMTRICITABINE\TENOFOVIR DISOPROXIL FUMARATE
     Indication: HIV INFECTION
     Dosage: ?          OTHER DOSE:MG;?
     Route: 048

REACTIONS (5)
  - Malaise [None]
  - Mitochondrial cytopathy [None]
  - Haemodialysis [None]
  - Lactic acidosis [None]
  - Condition aggravated [None]

NARRATIVE: CASE EVENT DATE: 20170407
